FAERS Safety Report 15074601 (Version 1)
Quarter: 2018Q2

REPORT INFORMATION
  Report Type: Spontaneous
  Country: US (occurrence: US)
  Receive Date: 20180627
  Receipt Date: 20180627
  Transmission Date: 20180711
  Serious: Yes (Other)
  Sender: FDA-Public Use
  Company Number: US-SAOL THERAPEUTICS-2018SAO00792

PATIENT
  Age: 59 Year
  Sex: Male

DRUGS (3)
  1. BACLOFEN. [Suspect]
     Active Substance: BACLOFEN
     Indication: PAIN
     Dosage: UNK
     Route: 037
     Dates: start: 20171115
  2. DILAUDID [Suspect]
     Active Substance: HYDROMORPHONE HYDROCHLORIDE
     Dosage: UNK
     Route: 037
     Dates: start: 20171011
  3. UNSPECIFIED INTRATHECAL MEDICATION [Suspect]
     Active Substance: UNSPECIFIED INGREDIENT
     Route: 037

REACTIONS (5)
  - Drug withdrawal syndrome [Unknown]
  - Off label use [Unknown]
  - Asthenia [Unknown]
  - Device failure [Not Recovered/Not Resolved]
  - Muscle spasms [None]

NARRATIVE: CASE EVENT DATE: 201711
